FAERS Safety Report 10022581 (Version 1)
Quarter: 2014Q1

REPORT INFORMATION
  Report Type: Spontaneous
  Country: US (occurrence: US)
  Receive Date: 20140319
  Receipt Date: 20140319
  Transmission Date: 20141002
  Serious: Yes (Other)
  Sender: FDA-Public Use
  Company Number: US-JNJFOC-20140307700

PATIENT
  Age: 65 Year
  Sex: Female

DRUGS (4)
  1. INVOKANA [Suspect]
     Indication: PRODUCT USED FOR UNKNOWN INDICATION
     Route: 048
  2. INVOKANA [Suspect]
     Indication: PRODUCT USED FOR UNKNOWN INDICATION
     Route: 048
     Dates: start: 201403
  3. METFORMIN [Concomitant]
  4. ACTOS [Concomitant]

REACTIONS (5)
  - Weight increased [Unknown]
  - Increased appetite [Unknown]
  - Hunger [Unknown]
  - Blood glucose increased [Unknown]
  - Drug ineffective [Unknown]
